FAERS Safety Report 7129671-6 (Version None)
Quarter: 2010Q4

REPORT INFORMATION
  Report Type: 
  Country: None (occurrence: None)
  Receive Date: 20101130
  Receipt Date: 20101115
  Transmission Date: 20110411
  Serious: Yes (Other)
  Sender: FDA-Public Use
  Company Number: US-ASTRAZENECA-2010SE54642

PATIENT
  Age: 48 Year
  Sex: Female
  Weight: 95 kg

DRUGS (13)
  1. TOPROL-XL [Suspect]
     Indication: ATRIAL FIBRILLATION
     Route: 048
     Dates: start: 20050101
  2. MULTAQ [Suspect]
     Route: 048
     Dates: start: 20091001, end: 20101101
  3. MULTAQ [Suspect]
     Route: 048
     Dates: start: 20101101
  4. CRESTOR [Concomitant]
     Route: 048
  5. POTASSIUM CHLORIDE [Concomitant]
  6. COUMADIN [Concomitant]
  7. AMIODARONE HCL [Concomitant]
     Dates: start: 20050101, end: 20050101
  8. OXYGEN [Concomitant]
  9. DEMADEX [Concomitant]
  10. SPIRONOLACTONE [Concomitant]
  11. LISINOPRIL [Concomitant]
  12. REVATIO [Concomitant]
  13. ACETYLSALICYLIC ACID [Concomitant]

REACTIONS (12)
  - ABDOMINAL PAIN UPPER [None]
  - BLOOD POTASSIUM DECREASED [None]
  - CARDIAC FAILURE CONGESTIVE [None]
  - DYSPNOEA [None]
  - EJECTION FRACTION DECREASED [None]
  - FLATULENCE [None]
  - GAIT DISTURBANCE [None]
  - INCORRECT DOSE ADMINISTERED [None]
  - OEDEMA PERIPHERAL [None]
  - SWELLING FACE [None]
  - TRANSIENT ISCHAEMIC ATTACK [None]
  - WEIGHT INCREASED [None]
